FAERS Safety Report 8440570-X (Version None)
Quarter: 2012Q2

REPORT INFORMATION
  Report Type: 
  Country: None (occurrence: None)
  Receive Date: 20120323
  Receipt Date: 20110624
  Transmission Date: 20120825
  Serious: Yes (Other)
  Sender: FDA-Public Use
  Company Number: 163-21880-11063525

PATIENT
  Age: 86 Year
  Sex: Female

DRUGS (2)
  1. TRANSFUSION (UNKNOWN) [Concomitant]
  2. REVLIMID [Suspect]
     Indication: MULTIPLE MYELOMA
     Dosage: 10 MG, 1 IN 1 D, PO
     Route: 048
     Dates: start: 20100216, end: 20110523

REACTIONS (7)
  - ASTHENIA [None]
  - PANCYTOPENIA [None]
  - NO THERAPEUTIC RESPONSE [None]
  - DISEASE PROGRESSION [None]
  - DIZZINESS [None]
  - DECREASED APPETITE [None]
  - CHILLS [None]
